FAERS Safety Report 8036012-9 (Version None)
Quarter: 2012Q1

REPORT INFORMATION
  Report Type: 
  Country: None (occurrence: None)
  Receive Date: 20120111
  Receipt Date: 20120109
  Transmission Date: 20120608
  Serious: Yes (Death, Other)
  Sender: FDA-Public Use
  Company Number: US-PFIZER INC-2011311955

PATIENT
  Age: 47 Year
  Sex: Female

DRUGS (4)
  1. NADOLOL [Suspect]
     Dosage: UNK
  2. QUINAPRIL HCL [Suspect]
     Dosage: UNK
  3. SILDENAFIL CITRATE [Suspect]
     Dosage: UNK
  4. ACETAMINOPHEN [Suspect]
     Dosage: UNK

REACTIONS (1)
  - COMPLETED SUICIDE [None]
